FAERS Safety Report 4612269-9 (Version None)
Quarter: 2005Q1

REPORT INFORMATION
  Report Type: 
  Country: None (occurrence: None)
  Receive Date: 20050316
  Receipt Date: 20050228
  Transmission Date: 20050727
  Serious: Yes (Hospitalization)
  Sender: FDA-Public Use
  Company Number: USA040568106

PATIENT
  Age: 79 Year
  Sex: Female
  Weight: 48 kg

DRUGS (9)
  1. FORTEO [Suspect]
     Indication: OSTEOPOROSIS
     Dosage: 20 UG DAY
     Dates: start: 20040301
  2. ACIPHEX [Concomitant]
  3. PREDNISONE [Concomitant]
  4. ZOCOR [Concomitant]
  5. SEREVENT [Concomitant]
  6. PULMOCARE [Concomitant]
  7. CALCIUM GLUCONATE [Concomitant]
  8. NASONEX [Concomitant]
  9. XANAX (ALPRAZOLAM DUM) [Concomitant]

REACTIONS (11)
  - ARTHRALGIA [None]
  - BACK PAIN [None]
  - BLOOD ALKALINE PHOSPHATASE INCREASED [None]
  - DIFFICULTY IN WALKING [None]
  - FALL [None]
  - FEAR [None]
  - IATROGENIC INJURY [None]
  - PAIN IN EXTREMITY [None]
  - PATELLA FRACTURE [None]
  - PHARMACEUTICAL PRODUCT COMPLAINT [None]
  - POST PROCEDURAL COMPLICATION [None]
